FAERS Safety Report 7744341 (Version 3)
Quarter: 2019Q3

REPORT INFORMATION
  Report Type: Spontaneous
  Country: US (occurrence: US)
  Receive Date: 20101230
  Receipt Date: 20190909
  Transmission Date: 20191005
  Serious: Yes (Other)
  Sender: FDA-Public Use
  Company Number: US-SANOFI-AVENTIS-2010SA077873

PATIENT
  Sex: Male
  Weight: 115 kg

DRUGS (1)
  1. LOVENOX [Suspect]
     Active Substance: ENOXAPARIN SODIUM
     Indication: THROMBOSIS PROPHYLAXIS
     Dosage: 120 MG,BID
     Route: 065
     Dates: start: 2005, end: 2012

REACTIONS (8)
  - Hernia [Unknown]
  - Injection site swelling [Unknown]
  - Product complaint [Unknown]
  - Dental operation [Unknown]
  - Bone loss [Unknown]
  - Contusion [Unknown]
  - Procedural haemorrhage [Unknown]
  - Pain in extremity [Unknown]

NARRATIVE: CASE EVENT DATE: 2008
